FAERS Safety Report 4929714-1 (Version None)
Quarter: 2006Q1

REPORT INFORMATION
  Report Type: 
  Country: None (occurrence: None)
  Receive Date: 20060224
  Receipt Date: 20060216
  Transmission Date: 20060701
  Serious: Yes (Hospitalization)
  Sender: FDA-Public Use
  Company Number: 230282K06USA

PATIENT
  Age: 50 Year
  Sex: Female

DRUGS (3)
  1. REBIF [Suspect]
     Indication: MULTIPLE SCLEROSIS
     Dosage: 44 MCG 3 IN 1 WEEKS SUBCUTANEOUS
     Route: 058
     Dates: start: 20030620
  2. ZONEGRAN [Concomitant]
  3. ZOCOR [Concomitant]

REACTIONS (8)
  - ARTHRALGIA [None]
  - BRONCHITIS [None]
  - DISEASE RECURRENCE [None]
  - INCISIONAL HERNIA [None]
  - INFLUENZA LIKE ILLNESS [None]
  - NEPHROLITHIASIS [None]
  - PAIN [None]
  - PYREXIA [None]
